FAERS Safety Report 8842047 (Version 1)
Quarter: 2012Q4

REPORT INFORMATION
  Report Type: 
  Country: US (occurrence: US)
  Receive Date: 20121016
  Receipt Date: 20121016
  Transmission Date: 20130627
  Serious: No
  Sender: FDA-Public Use
  Company Number: US-009507513-1209USA007650

PATIENT
  Sex: Female

DRUGS (4)
  1. PEGINTRON [Suspect]
     Indication: HEPATITIS C
     Dosage: UNK
     Dates: start: 20100615, end: 20110220
  2. PEGINTRON [Suspect]
     Dosage: UNK
     Dates: start: 20120901
  3. REBETOL [Suspect]
     Indication: HEPATITIS C
     Dosage: UNK
     Dates: start: 20100615, end: 20110220
  4. REBETOL [Suspect]
     Dosage: UNK
     Dates: start: 20120901

REACTIONS (4)
  - White blood cell count decreased [Unknown]
  - Headache [Unknown]
  - Rash generalised [Unknown]
  - Pruritus [Unknown]
